FAERS Safety Report 8593571 (Version 3)
Quarter: 2012Q4

REPORT INFORMATION
  Report Type: 
  Country: US (occurrence: US)
  Receive Date: 20120604
  Receipt Date: 20121108
  Transmission Date: 20130627
  Serious: Yes (Hospitalization)
  Sender: FDA-Public Use
  Company Number: US-BAYER-2012-053244

PATIENT
  Age: 25 Year
  Sex: Female
  Weight: 108.84 kg

DRUGS (5)
  1. YASMIN [Suspect]
     Indication: BIRTH CONTROL
     Dosage: UNK
     Dates: end: 2005
  2. MIRCETTE [Concomitant]
     Indication: BIRTH CONTROL
     Dosage: UNK
     Dates: start: 200607, end: 200805
  3. MYCOSTATIN [Concomitant]
     Dosage: 100,000 U/G, apply by topical route 2 times per day to the affected area(s) for 7 days
     Route: 061
     Dates: start: 20060718
  4. PROVERA [Concomitant]
     Dosage: 5 mg, BID, for 5 days
     Route: 048
     Dates: start: 20060718
  5. ALEVE [Concomitant]

REACTIONS (6)
  - Pulmonary embolism [None]
  - Deep vein thrombosis [None]
  - Injury [None]
  - Pain [None]
  - Chest pain [None]
  - Dyspnoea [None]
